FAERS Safety Report 9240847 (Version 1)
Quarter: 2013Q1

REPORT INFORMATION
  Report Type: Spontaneous
  Country: US (occurrence: None)
  Receive Date: 20121120
  Receipt Date: 20121120
  Transmission Date: 20140127
  Serious: No
  Sender: FDA-Public Use
  Company Number: 1000039643

PATIENT
  Age: 76 Year
  Sex: Female

DRUGS (2)
  1. VIIBRYD [Suspect]
     Indication: DEPRESSION
     Dosage: 10 MG (10 MG, 1 IN 1 D), ORAL
     Route: 048
     Dates: start: 201209, end: 20121017
  2. MECLIZINE (MECLIZINE) [Concomitant]

REACTIONS (4)
  - Muscle spasms [None]
  - Musculoskeletal pain [None]
  - Chest discomfort [None]
  - Gait disturbance [None]
